FAERS Safety Report 4358099-7 (Version None)
Quarter: 2004Q2

REPORT INFORMATION
  Report Type: 
  Country: None (occurrence: None)
  Receive Date: 20040510
  Receipt Date: 20040428
  Transmission Date: 20050107
  Serious: Yes (Hospitalization)
  Sender: FDA-Public Use
  Company Number: 2004201616US

PATIENT
  Age: 55 Year
  Sex: Male
  Weight: 74.8 kg

DRUGS (2)
  1. ELLENCE [Suspect]
     Indication: NON-SMALL CELL LUNG CANCER RECURRENT
     Dosage: 35 MG/M2, D1/4 CYCLES, IV
     Route: 042
     Dates: start: 20031201, end: 20040202
  2. CAMPTOSAR [Suspect]
     Indication: NON-SMALL CELL LUNG CANCER RECURRENT
     Dosage: 200 MG/M2, D/1/4 CYCLES, IV
     Route: 042
     Dates: start: 20031201, end: 20040202

REACTIONS (5)
  - CONSTIPATION [None]
  - DISEASE RECURRENCE [None]
  - MARKEDLY REDUCED DIETARY INTAKE [None]
  - SMALL INTESTINAL OBSTRUCTION [None]
  - WEIGHT DECREASED [None]
